FAERS Safety Report 13066466 (Version 1)
Quarter: 2016Q4

REPORT INFORMATION
  Report Type: Spontaneous
  Country: US (occurrence: US)
  Receive Date: 20161227
  Receipt Date: 20161227
  Transmission Date: 20170207
  Serious: No
  Sender: FDA-Public Use
  Company Number: US-EAGLE PHARMACEUTICALS, INC.-US-2016EAG000704

PATIENT

DRUGS (12)
  1. BENDEKA [Suspect]
     Active Substance: BENDAMUSTINE HYDROCHLORIDE
     Dosage: 183.6 MG (CYCLE 4, DAYS 1 AND 2)
     Dates: start: 2016
  2. RITUXAN [Suspect]
     Active Substance: RITUXIMAB
     Indication: NON-HODGKIN^S LYMPHOMA STAGE IV
     Dosage: 765 MG, (CYCLE 1, DAYS 1 AND 2)
     Dates: start: 2016
  3. RITUXAN [Suspect]
     Active Substance: RITUXIMAB
     Dosage: 765 MG, (CYCLE 5, DAYS 1 AND 2)
     Dates: start: 2016
  4. RITUXAN [Suspect]
     Active Substance: RITUXIMAB
     Dosage: 765 MG, (CYCLE 6, DAYS 1 AND 2)
     Dates: start: 2016
  5. BENDEKA [Suspect]
     Active Substance: BENDAMUSTINE HYDROCHLORIDE
     Indication: NON-HODGKIN^S LYMPHOMA STAGE IV
     Dosage: 183.6 MG (CYCLE 1, DAYS 1 AND 2)
     Dates: start: 20160510
  6. RITUXAN [Suspect]
     Active Substance: RITUXIMAB
     Dosage: 765 MG, (CYCLE 3, DAYS 1 AND 2)
     Dates: start: 2016
  7. RITUXAN [Suspect]
     Active Substance: RITUXIMAB
     Dosage: 765 MG, (CYCLE 4, DAYS 1 AND 2)
     Dates: start: 2016
  8. RITUXAN [Suspect]
     Active Substance: RITUXIMAB
     Dosage: 765 MG, (CYCLE 2, DAYS 1 AND 2)
     Dates: start: 2016
  9. BENDEKA [Suspect]
     Active Substance: BENDAMUSTINE HYDROCHLORIDE
     Dosage: 183.6 MG (CYCLE 2, DAYS 1 AND 2)
     Dates: start: 2016
  10. BENDEKA [Suspect]
     Active Substance: BENDAMUSTINE HYDROCHLORIDE
     Dosage: 183.6 MG (CYCLE 3, DAYS 1 AND 2)
     Dates: start: 2016
  11. BENDEKA [Suspect]
     Active Substance: BENDAMUSTINE HYDROCHLORIDE
     Dosage: 183.6 MG (CYCLE 5, DAYS 1 AND 2)
     Dates: start: 2016
  12. BENDEKA [Suspect]
     Active Substance: BENDAMUSTINE HYDROCHLORIDE
     Dosage: 183.6 MG (CYCLE 6, DAYS 1 AND 2)
     Dates: start: 2016

REACTIONS (1)
  - Rash [Not Recovered/Not Resolved]

NARRATIVE: CASE EVENT DATE: 2016
